FAERS Safety Report 6305098-1 (Version None)
Quarter: 2009Q3

REPORT INFORMATION
  Report Type: 
  Country: None (occurrence: None)
  Receive Date: 20090811
  Receipt Date: 20090811
  Transmission Date: 20100115
  Serious: Yes (Other)
  Sender: FDA-Public Use
  Company Number: US-PFIZER INC-2009210975

PATIENT
  Sex: Male
  Weight: 79 kg

DRUGS (1)
  1. VIAGRA [Suspect]
     Indication: ERECTILE DYSFUNCTION

REACTIONS (6)
  - DIVERTICULUM INTESTINAL [None]
  - EMPHYSEMA [None]
  - HEPATIC CYST [None]
  - PAIN [None]
  - PERIPHERAL ARTERY ANEURYSM [None]
  - RENAL CYST [None]
